FAERS Safety Report 13689631 (Version 4)
Quarter: 2018Q2

REPORT INFORMATION
  Report Type: Other
  Country: CA (occurrence: CA)
  Receive Date: 20170626
  Receipt Date: 20180606
  Transmission Date: 20180711
  Serious: Yes (Life-Threatening, Hospitalization, Other)
  Sender: FDA-Public Use
  Company Number: CA-APOTEX-2017AP013193

PATIENT
  Age: 42 Year
  Sex: Female

DRUGS (8)
  1. CYCLOPHOSPHAMIDE. [Suspect]
     Active Substance: CYCLOPHOSPHAMIDE
     Indication: BREAST CANCER
     Route: 065
  2. PROCYTOX [Suspect]
     Active Substance: CYCLOPHOSPHAMIDE
     Indication: BREAST CANCER
     Dosage: 50 MG TABLET
     Route: 065
  3. DOCETAXEL. [Suspect]
     Active Substance: DOCETAXEL
     Indication: BREAST CANCER
     Dosage: UNK, CYCLICAL
     Route: 065
  4. PREDNISONE. [Suspect]
     Active Substance: PREDNISONE
     Indication: ORGANISING PNEUMONIA
     Dosage: 1 MG/KG, UNK
     Route: 065
  5. PROCYTOX [Suspect]
     Active Substance: CYCLOPHOSPHAMIDE
     Dosage: POWDER FOR SOLUTION, CYCLICAL
     Route: 065
  6. MYCO[PHENOLATE [Suspect]
     Active Substance: MYCOPHENOLATE MOFETIL
     Indication: ORGANISING PNEUMONIA
     Route: 065
  7. TRASTUZUMAB. [Suspect]
     Active Substance: TRASTUZUMAB
     Indication: BREAST CANCER
     Dosage: UNK, CYCLICAL
     Route: 065
  8. PREDNISONE. [Suspect]
     Active Substance: PREDNISONE
     Dosage: 12.5 MG, QD
     Route: 048

REACTIONS (10)
  - Pulmonary oedema [Recovering/Resolving]
  - Bronchial polyp [Recovering/Resolving]
  - Hypoxia [Recovering/Resolving]
  - Biopsy lung abnormal [Recovering/Resolving]
  - Multifocal micronodular pneumocyte hyperplasia [Recovering/Resolving]
  - Respiratory failure [Recovering/Resolving]
  - Computerised tomogram thorax abnormal [Recovering/Resolving]
  - Organising pneumonia [Recovering/Resolving]
  - Product use issue [Recovering/Resolving]
  - Therapeutic response decreased [Recovering/Resolving]
